FAERS Safety Report 12712069 (Version 2)
Quarter: 2016Q4

REPORT INFORMATION
  Report Type: Spontaneous
  Country: US (occurrence: US)
  Receive Date: 20160902
  Receipt Date: 20161010
  Transmission Date: 20170207
  Serious: Yes (Other)
  Sender: FDA-Public Use
  Company Number: US-AMGEN-USASP2016114019

PATIENT
  Age: 75 Year
  Sex: Male
  Weight: 81.63 kg

DRUGS (2)
  1. PROLIA [Suspect]
     Active Substance: DENOSUMAB
     Dosage: UNK
     Route: 065
     Dates: start: 20151223
  2. PROLIA [Suspect]
     Active Substance: DENOSUMAB
     Indication: OSTEOPOROSIS
     Dosage: 60 MG/ML, Q6MO
     Route: 058
     Dates: start: 20150622, end: 20160627

REACTIONS (3)
  - Swelling face [Recovering/Resolving]
  - Bone disorder [Unknown]
  - Local swelling [Recovering/Resolving]

NARRATIVE: CASE EVENT DATE: 201604
